FAERS Safety Report 6183409-8 (Version None)
Quarter: 2009Q2

REPORT INFORMATION
  Report Type: 
  Country: None (occurrence: None)
  Receive Date: 20090507
  Receipt Date: 20090422
  Transmission Date: 20091009
  Serious: Yes (Death)
  Sender: FDA-Public Use
  Company Number: TW-MERCK-0904TWN00009

PATIENT
  Age: 75 Year
  Sex: Male

DRUGS (4)
  1. PRIMAXIN [Suspect]
     Indication: BACTERAEMIA
     Route: 041
     Dates: start: 20040101, end: 20040101
  2. SULBACTAM [Concomitant]
     Indication: BACTERAEMIA
     Route: 041
     Dates: start: 20040101, end: 20040101
  3. TEICOPLANIN [Concomitant]
     Indication: BACTERAEMIA
     Route: 041
     Dates: start: 20040101, end: 20040101
  4. CIPROFLOXACIN [Concomitant]
     Indication: BACTERAEMIA
     Route: 041
     Dates: start: 20040101, end: 20040101

REACTIONS (2)
  - BACTERAEMIA [None]
  - SEPTIC SHOCK [None]
